FAERS Safety Report 5303606-0 (Version None)
Quarter: 2007Q2

REPORT INFORMATION
  Report Type: 
  Country: None (occurrence: None)
  Receive Date: 20070420
  Receipt Date: 20070410
  Transmission Date: 20071010
  Serious: Yes (Hospitalization, Other)
  Sender: FDA-Public Use
  Company Number: PT-PFIZER INC-2007025036

PATIENT
  Sex: Female

DRUGS (1)
  1. ZELDOX (CAPSULES) [Suspect]
     Route: 048

REACTIONS (1)
  - LARYNGEAL OEDEMA [None]
